FAERS Safety Report 4919445-6 (Version None)
Quarter: 2006Q1

REPORT INFORMATION
  Report Type: 
  Country: None (occurrence: None)
  Receive Date: 20060222
  Receipt Date: 20050609
  Transmission Date: 20060701
  Serious: Yes (Hospitalization)
  Sender: FDA-Public Use
  Company Number: US-MERCK-0506USA01575

PATIENT
  Age: 70 Year
  Sex: Female
  Weight: 64 kg

DRUGS (12)
  1. VIOXX [Suspect]
     Indication: RHEUMATOID ARTHRITIS
     Route: 048
     Dates: start: 20000322
  2. VIOXX [Suspect]
     Route: 048
     Dates: start: 20030417, end: 20031126
  3. ASPIRIN [Concomitant]
     Route: 065
  4. ACETAMINOPHEN AND HYDROCODONE BITARTRATE [Concomitant]
     Route: 065
  5. PREDNISONE [Concomitant]
     Route: 065
  6. HYDROXYCHLOROQUINE SULFATE [Concomitant]
     Route: 065
  7. PREMARIN [Concomitant]
     Route: 065
  8. METHOTREXATE [Concomitant]
     Route: 065
  9. NEURONTIN [Concomitant]
     Route: 065
  10. ROXICET [Concomitant]
     Route: 065
  11. DILTIAZEM MALATE [Concomitant]
     Route: 065
  12. TEMAZEPAM [Concomitant]
     Route: 065

REACTIONS (3)
  - HAND FRACTURE [None]
  - MYOCARDIAL INFARCTION [None]
  - RAYNAUD'S PHENOMENON [None]
